FAERS Safety Report 4992280-9 (Version None)
Quarter: 2006Q2

REPORT INFORMATION
  Report Type: 
  Country: None (occurrence: None)
  Receive Date: 20060502
  Receipt Date: 20060418
  Transmission Date: 20061013
  Serious: Yes (Hospitalization)
  Sender: FDA-Public Use
  Company Number: MEDI-0004475

PATIENT
  Age: 51 Year
  Sex: Female
  Weight: 51.2565 kg

DRUGS (11)
  1. ETHYOL [Suspect]
     Indication: RADIOTHERAPY
     Dosage: SUBCUTANEOUS
     Route: 058
     Dates: start: 20060314, end: 20060403
  2. RADIATION THERAPY [Concomitant]
  3. CISPLATIN [Concomitant]
  4. ETOPOSIDE [Concomitant]
  5. MANNITOL [Concomitant]
  6. PROVIGIL [Concomitant]
  7. MARINOL [Concomitant]
  8. MEGACE [Concomitant]
  9. SNEOKOT (SENNA FRUIT) [Concomitant]
  10. HYOSCYAMINE (HYOSCYAMINE) [Concomitant]
  11. PROTONIX [Concomitant]

REACTIONS (16)
  - AMNESIA [None]
  - BACK PAIN [None]
  - CAROTID ARTERY OCCLUSION [None]
  - CEREBROVASCULAR ACCIDENT [None]
  - HEART RATE INCREASED [None]
  - HYPOTENSION [None]
  - INJECTION SITE ERYTHEMA [None]
  - INJECTION SITE OEDEMA [None]
  - INJECTION SITE RASH [None]
  - INJECTION SITE WARMTH [None]
  - NASOPHARYNGITIS [None]
  - NAUSEA [None]
  - SKIN REACTION [None]
  - TACHYCARDIA [None]
  - TREATMENT NONCOMPLIANCE [None]
  - TREMOR [None]
